FAERS Safety Report 9956408 (Version 2)
Quarter: 2014Q1

REPORT INFORMATION
  Report Type: Spontaneous
  Country: PR (occurrence: PR)
  Receive Date: 20140304
  Receipt Date: 20140304
  Transmission Date: 20141002
  Serious: No
  Sender: FDA-Public Use
  Company Number: PR-ABBVIE-12P-131-1015045-00

PATIENT
  Sex: Male
  Weight: 95.34 kg

DRUGS (6)
  1. HUMIRA [Suspect]
     Indication: COLITIS
     Route: 058
     Dates: start: 201208, end: 201211
  2. HUMIRA [Suspect]
     Indication: COLITIS
     Route: 058
     Dates: start: 20130426
  3. UNKNOWN MEDICATION [Concomitant]
     Indication: DEPRESSION
     Route: 048
  4. KOMBIGLYZE W/METFORMIN [Concomitant]
     Indication: DIABETES MELLITUS
     Route: 048
  5. ASACOL [Concomitant]
     Indication: GASTRIC DISORDER
     Route: 048
  6. UNKNOWN INHALER [Concomitant]
     Indication: ASTHMA
     Dosage: PUFFS DAILY
     Route: 055

REACTIONS (2)
  - Asthma [Recovered/Resolved]
  - Bronchospasm [Recovered/Resolved]
